FAERS Safety Report 11607221 (Version 1)
Quarter: 2015Q3

REPORT INFORMATION
  Report Type: Spontaneous
  Country: US (occurrence: US)
  Receive Date: 20150916
  Receipt Date: 20150916
  Transmission Date: 20151125
  Serious: No
  Sender: FDA-Public Use
  Company Number: US-ELI_LILLY_AND_COMPANY-US201401009729

PATIENT
  Age: 78 Year
  Sex: Male

DRUGS (2)
  1. HUMALOG MIX75/25 [Suspect]
     Active Substance: INSULIN LISPRO
     Indication: DIABETES MELLITUS
     Dosage: 37 U, BID
     Route: 065
  2. JANUVIA [Concomitant]
     Active Substance: SITAGLIPTIN PHOSPHATE
     Dosage: UNK, UNKNOWN
     Route: 048

REACTIONS (2)
  - Incorrect dose administered [Recovered/Resolved]
  - Blood glucose decreased [Recovered/Resolved]

NARRATIVE: CASE EVENT DATE: 20140123
